FAERS Safety Report 4374761-4 (Version None)
Quarter: 2004Q2

REPORT INFORMATION
  Report Type: 
  Country: None (occurrence: None)
  Receive Date: 20040609
  Receipt Date: 20040528
  Transmission Date: 20050107
  Serious: Yes (Disabling, Other)
  Sender: FDA-Public Use
  Company Number: GB-BRISTOL-MYERS SQUIBB COMPANY-12598785

PATIENT
  Age: 57 Year
  Sex: Male

DRUGS (2)
  1. IRBESARTAN TABS [Suspect]
     Route: 048
     Dates: start: 20010101, end: 20040101
  2. LINOL ACID CREAM [Interacting]
     Route: 061
     Dates: start: 20030101, end: 20030101

REACTIONS (2)
  - DRUG INTERACTION [None]
  - PHOTOSENSITIVITY REACTION [None]
